FAERS Safety Report 5491726-X (Version None)
Quarter: 2007Q4

REPORT INFORMATION
  Report Type: 
  Country: None (occurrence: None)
  Receive Date: 20071022
  Receipt Date: 20071016
  Transmission Date: 20080405
  Serious: Yes (Life-Threatening, Hospitalization)
  Sender: FDA-Public Use
  Company Number: GB-BAYER-200711098BNE

PATIENT
  Age: 58 Year
  Sex: Male

DRUGS (8)
  1. ASPIRIN [Suspect]
     Indication: INTERMITTENT CLAUDICATION
     Dosage: TOTAL DAILY DOSE: 75 MG
     Route: 048
     Dates: end: 20051228
  2. CLOPIDOGREL [Suspect]
     Indication: ILIAC ARTERY STENOSIS
     Dosage: TOTAL DAILY DOSE: 75 MG
     Route: 048
     Dates: end: 20051228
  3. CO-CODAMOL [Concomitant]
     Indication: ANALGESIA
     Route: 048
  4. CO-CODAMOL [Concomitant]
     Route: 048
  5. PARACETAMOL [Concomitant]
     Route: 048
  6. PARACETAMOL [Concomitant]
     Route: 048
  7. PERINDOPRIL ERBUMINE [Concomitant]
     Indication: PERIPHERAL VASCULAR DISORDER
     Route: 048
     Dates: start: 20030901
  8. SIMVASTATIN [Concomitant]
     Indication: PERIPHERAL VASCULAR DISORDER
     Route: 048

REACTIONS (3)
  - DYSPEPSIA [None]
  - DYSPNOEA [None]
  - HAEMOGLOBIN DECREASED [None]
